FAERS Safety Report 7726534-X (Version None)
Quarter: 2011Q3

REPORT INFORMATION
  Report Type: 
  Country: None (occurrence: None)
  Receive Date: 20110902
  Receipt Date: 20110823
  Transmission Date: 20111222
  Serious: Yes (Other)
  Sender: FDA-Public Use
  Company Number: PHHY2011FR75742

PATIENT
  Age: 50 Year
  Sex: Male

DRUGS (1)
  1. CLOZAPINE [Suspect]
     Indication: SCHIZOPHRENIA
     Dosage: 200 MG, DAILY

REACTIONS (5)
  - SUICIDAL IDEATION [None]
  - VOMITING [None]
  - LOSS OF CONSCIOUSNESS [None]
  - DELIRIUM [None]
  - ANXIETY [None]
